FAERS Safety Report 10402789 (Version 1)
Quarter: 2014Q3

REPORT INFORMATION
  Report Type: Spontaneous
  Country: US (occurrence: US)
  Receive Date: 20140822
  Receipt Date: 20140822
  Transmission Date: 20150326
  Serious: No
  Sender: FDA-Public Use
  Company Number: US-BAXTER-2014BAX046916

PATIENT
  Sex: Male
  Weight: 57.2 kg

DRUGS (1)
  1. GAMMAGARD LIQUID [Suspect]
     Active Substance: HUMAN IMMUNOGLOBULIN G
     Indication: BRUTON^S AGAMMAGLOBULINAEMIA
     Dosage: 7 DROPS PER MINUTE
     Route: 042

REACTIONS (3)
  - Flushing [Unknown]
  - Hyperhidrosis [Unknown]
  - Vomiting [Unknown]
